FAERS Safety Report 10177246 (Version 1)
Quarter: 2014Q2

REPORT INFORMATION
  Report Type: Spontaneous
  Country: US (occurrence: US)
  Receive Date: 20140516
  Receipt Date: 20140516
  Transmission Date: 20141212
  Serious: Yes (Death)
  Sender: FDA-Public Use
  Company Number: US-GLAXOSMITHKLINE-A1072642A

PATIENT
  Age: 54 Year
  Sex: Female

DRUGS (3)
  1. VOTRIENT [Suspect]
     Indication: NEOPLASM MALIGNANT
     Dosage: 800MG PER DAY
     Route: 048
     Dates: start: 20140311
  2. ZOLOFT [Concomitant]
  3. TYLENOL [Concomitant]

REACTIONS (1)
  - Death [Fatal]
